FAERS Safety Report 19471534 (Version 1)
Quarter: 2021Q2

REPORT INFORMATION
  Report Type: Spontaneous
  Country: DE (occurrence: DE)
  Receive Date: 20210628
  Receipt Date: 20210628
  Transmission Date: 20210717
  Serious: Yes (Life-Threatening, Hospitalization, Other)
  Sender: FDA-Public Use
  Company Number: DE-TEVA-2021-DE-1921722

PATIENT
  Age: 41 Year
  Sex: Female
  Weight: 100 kg

DRUGS (75)
  1. DOXORUBICIN [Suspect]
     Active Substance: DOXORUBICIN
     Dosage: 25 MG/M2 (DAY 1 AND DAY 15)
     Route: 065
     Dates: start: 20151027, end: 201512
  2. PARACETAMOL [Suspect]
     Active Substance: ACETAMINOPHEN
     Indication: PRODUCT USED FOR UNKNOWN INDICATION
     Dosage: THERAPY START AND END DATE: ASKU
     Route: 065
  3. BACLOFEN. [Suspect]
     Active Substance: BACLOFEN
     Indication: PRODUCT USED FOR UNKNOWN INDICATION
     Dosage: 200 MCG, VIA PUMP, THERAPY START AND END DATE: ASKU
     Route: 058
  4. VALSARTAN HEXAL COMP 160 MG/12,5 MG FILMTABLETTEN [Suspect]
     Active Substance: HYDROCHLOROTHIAZIDE\VALSARTAN
     Dosage: THERAPY END DATE: ASKU
     Route: 065
     Dates: start: 20150415
  5. VALSARTAN HEXAL COMP 160 MG/12,5 MG FILMTABLETTEN [Suspect]
     Active Substance: HYDROCHLOROTHIAZIDE\VALSARTAN
     Dosage: THERAPY END DATE: ASKU
     Route: 065
     Dates: start: 20150102
  6. GRANOCYTE [Suspect]
     Active Substance: LENOGRASTIM
     Dosage: THERAPY END DATE: ASKU
     Route: 065
     Dates: start: 201511
  7. LYRICA [Concomitant]
     Active Substance: PREGABALIN
     Dosage: 1X 150, 1X, STOP DATE: FEB/MAR 2016, 1 DF
     Route: 065
     Dates: end: 2016
  8. MOTILIUM [Concomitant]
     Active Substance: DOMPERIDONE
     Dosage: 4 DOSAGE FORMS DAILY; 1 DF, SACHET, THERAPY START AND END DATE: ASKU
     Route: 065
  9. TRANXILIUM [Concomitant]
     Active Substance: CLORAZEPATE DIPOTASSIUM
     Indication: PRODUCT USED FOR UNKNOWN INDICATION
     Dosage: 10 MILLIGRAM DAILY; (MORNING)
     Route: 065
  10. DIAZEPAM. [Concomitant]
     Active Substance: DIAZEPAM
     Indication: PAIN IN EXTREMITY
     Dosage: 1 DOSAGE FORMS DAILY; 1X 2.5, (EVENING)
     Route: 065
  11. ACETYLSALICYLIC ACID [Suspect]
     Active Substance: ASPIRIN
     Indication: PRODUCT USED FOR UNKNOWN INDICATION
     Dosage: THERAPY START AND END DATE: ASKU
     Route: 065
  12. BLEOMYCIN [Suspect]
     Active Substance: BLEOMYCIN SULFATE
     Indication: HODGKIN^S DISEASE
     Dosage: 25 MG/M2 (DAY 1 AND DAY 15)
     Route: 065
     Dates: start: 20151027, end: 201512
  13. DICLOFENAC [Suspect]
     Active Substance: DICLOFENAC
     Indication: PRODUCT USED FOR UNKNOWN INDICATION
     Dosage: THERAPY START AND END DATE: ASKU
     Route: 065
  14. VINBLASTINE [Suspect]
     Active Substance: VINBLASTINE
     Indication: HODGKIN^S DISEASE
     Dosage: 6 MG/M2, (DAY 1 AND DAY 15)
     Route: 065
     Dates: start: 20151027, end: 201512
  15. BACLOFEN. [Suspect]
     Active Substance: BACLOFEN
     Dosage: 3 DOSAGE FORMS DAILY; 200 MCG/20 MG VIA PUMP (1?1?1), THERAPY START AND END DATE: ASKU
     Route: 058
  16. DIPIDOLOR [Suspect]
     Active Substance: PIRITRAMIDE
     Indication: PAIN IN EXTREMITY
     Dosage: 15 MG, THERAPY END DATE: ASKU
     Route: 065
     Dates: start: 20150608
  17. VALSARTAN HEXAL COMP 160 MG/12,5 MG FILMTABLETTEN [Suspect]
     Active Substance: HYDROCHLOROTHIAZIDE\VALSARTAN
     Dosage: THERAPY END DATE: ASKU
     Route: 065
     Dates: start: 20170112
  18. VALSARTAN HEXAL COMP 160 MG/12,5 MG FILMTABLETTEN [Suspect]
     Active Substance: HYDROCHLOROTHIAZIDE\VALSARTAN
     Dosage: 1 DOSAGE FORMS DAILY;  (IN MORNING 1?0?0)
     Route: 065
     Dates: start: 201407, end: 201407
  19. GRANOCYTE [Suspect]
     Active Substance: LENOGRASTIM
     Dosage: 1 DOSAGE FORMS DAILY; 1X 34
     Route: 065
     Dates: start: 20160203, end: 20160205
  20. LYRICA [Concomitant]
     Active Substance: PREGABALIN
     Dosage: 2 DOSAGE FORMS DAILY; 2X 75, (MORNING), START DATE: FEB/MAR 2016, 2 DF
     Route: 065
     Dates: start: 2016
  21. PANTOZOL [Concomitant]
     Active Substance: PANTOPRAZOLE SODIUM
     Dosage: 1 DOSAGE FORMS DAILY; 1X 40, (MORNING)
     Route: 065
  22. MOVICOL [Concomitant]
     Active Substance: POLYETHYLENE GLYCOL 3350\POTASSIUM CHLORIDE\SODIUM BICARBONATE\SODIUM CHLORIDE
     Indication: PRODUCT USED FOR UNKNOWN INDICATION
     Dosage: 1 DF, SACHET, 1X IF NEEDED
     Route: 065
  23. VALSARTAN. [Concomitant]
     Active Substance: VALSARTAN
     Indication: HYPERTENSION
     Route: 065
     Dates: start: 20130124
  24. VALSACOR COMP [Concomitant]
     Active Substance: HYDROCHLOROTHIAZIDE\VALSARTAN
     Route: 065
     Dates: start: 20170411
  25. DIAZEPAM. [Concomitant]
     Active Substance: DIAZEPAM
     Indication: PRODUCT USED FOR UNKNOWN INDICATION
     Dosage: 1 DOSAGE FORMS DAILY; 1X 2.5, (MORNING)
     Route: 065
  26. DIAZEPAM. [Concomitant]
     Active Substance: DIAZEPAM
     Indication: BACK PAIN
  27. DIAZEPAM. [Suspect]
     Active Substance: DIAZEPAM
     Indication: PAIN IN EXTREMITY
     Dosage: 10 MG, THERAPY END DATE: ASKU
     Route: 065
     Dates: start: 20150608
  28. DOXORUBICIN [Suspect]
     Active Substance: DOXORUBICIN
     Indication: HODGKIN^S DISEASE
     Dosage: 25 MG/M2 (DAY 1), THERAPY END DATE: ASKU
     Route: 065
     Dates: start: 20160113
  29. ETOPOSIDE. [Suspect]
     Active Substance: ETOPOSIDE
     Indication: HODGKIN^S DISEASE
     Dosage: 100 MG/M2, DAY 1 TO 3, THERAPY END DATE: ASKU
     Route: 065
     Dates: start: 20160113
  30. BACLOFEN. [Suspect]
     Active Substance: BACLOFEN
     Dosage: 3 DOSAGE FORMS DAILY; (25/20 MG IN MORNING, 20 MG IN NOON, 20 MG IN THE EVENING
     Route: 065
  31. BACLOFEN. [Suspect]
     Active Substance: BACLOFEN
     Dosage: 100 MILLIGRAM DAILY; 25 MG (1?1?1?1 ONCE IN MORNING, NOON, AFTERNOON, EVENING)
     Route: 048
     Dates: start: 20180102
  32. VALSARTAN 1A PHARMA [Suspect]
     Active Substance: VALSARTAN
     Indication: HYPERTENSION
     Dosage: 160/ 12.5 MG, 1 DF
     Route: 065
     Dates: start: 201407, end: 201410
  33. VALSARTAN 1A PHARMA [Suspect]
     Active Substance: VALSARTAN
     Dosage: 80 MG, THERAPY END DATE: ASKU
     Route: 065
     Dates: start: 20140707
  34. DACARBAZINE. [Suspect]
     Active Substance: DACARBAZINE
     Indication: HODGKIN^S DISEASE
     Dosage: 375 MG/M2, DAY 1 AND DAY 15
     Route: 065
     Dates: start: 20151027, end: 201512
  35. PROCARBAZINE [Suspect]
     Active Substance: PROCARBAZINE
     Indication: HODGKIN^S DISEASE
     Dosage: 100 MG/M2 (200 MG), DAY 1?7, DAILY
     Route: 065
  36. PANTOZOL [Concomitant]
     Active Substance: PANTOPRAZOLE SODIUM
     Indication: PRODUCT USED FOR UNKNOWN INDICATION
     Dosage: 1 DOSAGE FORMS DAILY; 1X 40, (EVENING)
     Route: 065
  37. MORPHINE [Concomitant]
     Active Substance: MORPHINE
     Indication: PAIN
     Dosage: VIA PUMP
     Route: 065
  38. COTRIMOX FORTE [Concomitant]
     Active Substance: SULFAMETHOXAZOLE\TRIMETHOPRIM
     Indication: PNEUMONIA
     Dosage: (ON (SATURDAY AND SUNDAY), 2 DF
     Route: 065
  39. VALSACOR COMP [Concomitant]
     Active Substance: HYDROCHLOROTHIAZIDE\VALSARTAN
     Route: 065
     Dates: start: 20170725
  40. DIAZEPAM. [Suspect]
     Active Substance: DIAZEPAM
     Indication: BACK PAIN
  41. PREDNISOLONE. [Suspect]
     Active Substance: PREDNISOLONE
     Indication: HODGKIN^S DISEASE
     Dosage: 40 MG MG/M2 (80 MG), DAY 1 TO 14, DAILY
     Route: 065
     Dates: start: 20160113, end: 20160126
  42. BACLOFEN. [Suspect]
     Active Substance: BACLOFEN
     Dosage: (125 MCG/24 HOURS 2000 MCG/ML VIA PUMP), 1 DF
     Route: 065
     Dates: start: 20180228
  43. CLONIDINE. [Concomitant]
     Active Substance: CLONIDINE
     Dosage: 0.15 MCG, (1?0?1 IN MORNING AND EVENING). 0.3 MCG
     Route: 065
  44. TRANXILIUM [Concomitant]
     Active Substance: CLORAZEPATE DIPOTASSIUM
     Dosage: 20 MILLIGRAM DAILY; (MORNING AND EVENING)
     Route: 065
  45. CLEXANE [Concomitant]
     Active Substance: ENOXAPARIN SODIUM
     Indication: THROMBOSIS PROPHYLAXIS
     Dosage: 40 MILLIGRAM DAILY;
     Route: 058
  46. LEVOTHYROXINE. [Concomitant]
     Active Substance: LEVOTHYROXINE
     Indication: PRODUCT USED FOR UNKNOWN INDICATION
     Route: 065
  47. VALSARTAN HEXAL COMP 160 MG/12,5 MG FILMTABLETTEN [Suspect]
     Active Substance: HYDROCHLOROTHIAZIDE\VALSARTAN
     Dosage: THERAPY END DATE: ASKU
     Route: 065
     Dates: start: 20160804
  48. GRANOCYTE [Suspect]
     Active Substance: LENOGRASTIM
     Route: 065
     Dates: start: 201511, end: 201511
  49. LYRICA [Concomitant]
     Active Substance: PREGABALIN
     Indication: PRODUCT USED FOR UNKNOWN INDICATION
     Dosage: 1 DOSAGE FORMS DAILY; 1X 75, (EVENING), START DATE: FEB/MAR 2016
     Route: 065
     Dates: start: 2016
  50. LYRICA [Concomitant]
     Active Substance: PREGABALIN
     Dosage: 2 DOSAGE FORMS DAILY; 1X 150, (MORNING AND EVENING)
     Route: 065
  51. TRANXILIUM [Concomitant]
     Active Substance: CLORAZEPATE DIPOTASSIUM
     Dosage: 15 MILLIGRAM DAILY; 15 MG, (EVENING OR NIGHT))
     Route: 065
  52. PANTOZOL [Concomitant]
     Active Substance: PANTOPRAZOLE SODIUM
     Dosage: 40 MILLIGRAM DAILY; 40 MG
     Route: 065
  53. BACLOFEN. [Suspect]
     Active Substance: BACLOFEN
     Indication: PRODUCT USED FOR UNKNOWN INDICATION
     Dosage: 200 MCG, VIA PUMP, THERAPY START AND END DATE: ASKU
     Route: 058
  54. BACLOFEN. [Suspect]
     Active Substance: BACLOFEN
     Route: 048
     Dates: start: 20170704, end: 20170712
  55. DIPIDOLOR [Suspect]
     Active Substance: PIRITRAMIDE
     Indication: BACK PAIN
  56. VALSARTAN HEXAL COMP 160 MG/12,5 MG FILMTABLETTEN [Suspect]
     Active Substance: HYDROCHLOROTHIAZIDE\VALSARTAN
     Dosage: THERAPY END DATE: ASKU
     Route: 065
     Dates: start: 20150611
  57. CYCLOPHOSPHAMIDE. [Suspect]
     Active Substance: CYCLOPHOSPHAMIDE
     Indication: HODGKIN^S DISEASE
     Dosage: 750 MG/M2, THERAPY END DATE: ASKU
     Route: 065
     Dates: start: 20160113
  58. NEULASTA [Suspect]
     Active Substance: PEGFILGRASTIM
     Indication: NEUTROPENIA
     Route: 058
     Dates: start: 20151212, end: 20151212
  59. GRANOCYTE [Suspect]
     Active Substance: LENOGRASTIM
     Indication: NEUTROPENIA
     Dosage: 1 DOSAGE FORMS DAILY; 1X 34
     Route: 065
     Dates: start: 20160120, end: 201601
  60. CLONIDINE. [Concomitant]
     Active Substance: CLONIDINE
     Indication: PRODUCT USED FOR UNKNOWN INDICATION
     Dosage: 1 MILLIGRAM DAILY;
     Route: 065
  61. PALLADON [Concomitant]
     Active Substance: HYDROMORPHONE
     Indication: PRODUCT USED FOR UNKNOWN INDICATION
     Dosage: 8 MG, BID, 16 MG
     Route: 065
     Dates: end: 201511
  62. CITALOPRAM [Concomitant]
     Active Substance: CITALOPRAM HYDROBROMIDE
     Indication: PRODUCT USED FOR UNKNOWN INDICATION
     Dosage: 1 DOSAGE FORMS DAILY; 1X 20, (MORNING)
     Route: 065
  63. VALSACOR COMP [Concomitant]
     Active Substance: HYDROCHLOROTHIAZIDE\VALSARTAN
     Indication: HYPERTENSION
     Dosage: 160 MG /12.5 MG
     Route: 065
     Dates: start: 201704, end: 2017
  64. VINCRISTINE [Suspect]
     Active Substance: VINCRISTINE
     Indication: HODGKIN^S DISEASE
     Dosage: 2 MG ABSOLUTE, DAY 8, THERAPY END DATE: ASKU
     Route: 065
     Dates: start: 20160120
  65. VALSARTAN HEXAL COMP 160 MG/12,5 MG FILMTABLETTEN [Suspect]
     Active Substance: HYDROCHLOROTHIAZIDE\VALSARTAN
     Indication: HYPERTENSION
     Dosage: THERAPY END DATE: ASKU
     Route: 065
     Dates: start: 20160427
  66. VALSARTAN HEXAL COMP 160 MG/12,5 MG FILMTABLETTEN [Suspect]
     Active Substance: HYDROCHLOROTHIAZIDE\VALSARTAN
     Dosage: 1 DOSAGE FORMS DAILY; (IN MORNING, 1?0?0)
     Route: 065
     Dates: start: 201410, end: 201704
  67. VALSARTAN HEXAL COMP 160 MG/12,5 MG FILMTABLETTEN [Suspect]
     Active Substance: HYDROCHLOROTHIAZIDE\VALSARTAN
     Dosage: THERAPY END DATE: ASKU
     Route: 065
     Dates: start: 20141014
  68. VALSARTAN HEXAL COMP 160 MG/12,5 MG FILMTABLETTEN [Suspect]
     Active Substance: HYDROCHLOROTHIAZIDE\VALSARTAN
     Dosage: THERAPY END DATE: ASKU
     Route: 065
     Dates: start: 20140707
  69. LYRICA [Concomitant]
     Active Substance: PREGABALIN
     Dosage: 2 DOSAGE FORMS DAILY; 1X 150, (MORNING AND EVENING)
     Route: 065
  70. MOTILIUM [Concomitant]
     Active Substance: DOMPERIDONE
     Indication: PRODUCT USED FOR UNKNOWN INDICATION
     Dosage: 30 MILLIGRAM DAILY; IN THE MORNING, NOON AND EVENING)
     Route: 048
  71. VIGANTOLETTEN [Concomitant]
     Active Substance: CHOLECALCIFEROL
     Indication: PRODUCT USED FOR UNKNOWN INDICATION
     Dosage: 100 MILLIGRAM DAILY; (IN THE MORNING)
     Route: 048
  72. VALSARTAN. [Concomitant]
     Active Substance: VALSARTAN
     Dosage: 160 MG / 12.5 MG
     Route: 065
     Dates: start: 201301
  73. BLEOMYCIN [Suspect]
     Active Substance: BLEOMYCIN SULFATE
     Dosage: 10 MG/M2, DAY 8, THERAPY END DATE: ASKU
     Route: 065
     Dates: start: 20160120
  74. IBUPROFEN. [Suspect]
     Active Substance: IBUPROFEN
     Indication: PRODUCT USED FOR UNKNOWN INDICATION
     Dosage: THERAPY START AND END DATE: ASKU
     Route: 065
  75. LYRICA [Concomitant]
     Active Substance: PREGABALIN
     Dosage: 1X 150, 1X, STOP DATE:  FEB/MAR 2016, 1 DF
     Route: 065
     Dates: end: 2016

REACTIONS (71)
  - Somnolence [Recovering/Resolving]
  - Lymphadenopathy [Recovering/Resolving]
  - Tenderness [Unknown]
  - Psychogenic seizure [Unknown]
  - Hypothyroidism [Unknown]
  - Drug abuse [Unknown]
  - Red blood cell sedimentation rate increased [Unknown]
  - Renal cyst [Unknown]
  - Abdominal tenderness [Unknown]
  - Hyperhidrosis [Unknown]
  - Anaesthesia [Recovering/Resolving]
  - Intervertebral disc disorder [Unknown]
  - Muscle spasticity [Unknown]
  - Urinary tract infection [Unknown]
  - Fatigue [Unknown]
  - Loss of consciousness [Unknown]
  - Vomiting [Unknown]
  - Sepsis [Unknown]
  - Neurological decompensation [Recovering/Resolving]
  - Hypokinesia [Not Recovered/Not Resolved]
  - General physical health deterioration [Unknown]
  - Arthralgia [Unknown]
  - Back pain [Recovering/Resolving]
  - Monoplegia [Unknown]
  - Device malfunction [Unknown]
  - Myalgia [Unknown]
  - Bone pain [Unknown]
  - Pain [Unknown]
  - Fatigue [Unknown]
  - Pulmonary congestion [Unknown]
  - Candida infection [Unknown]
  - Dysaesthesia [Recovering/Resolving]
  - Hypochromic anaemia [Unknown]
  - Hypoaesthesia [Recovering/Resolving]
  - Sleep disorder [Unknown]
  - Hodgkin^s disease [Unknown]
  - Cough [Unknown]
  - Headache [Unknown]
  - Pain in extremity [Unknown]
  - Basal ganglion degeneration [Unknown]
  - Splenomegaly [Unknown]
  - Speech disorder [Recovering/Resolving]
  - Klebsiella infection [Unknown]
  - Fall [Unknown]
  - Lung disorder [Unknown]
  - Respiratory failure [Unknown]
  - Hyperpyrexia [Unknown]
  - Viral infection [Unknown]
  - Nausea [Recovering/Resolving]
  - Inflammation [Recovering/Resolving]
  - Tremor [Unknown]
  - Tachycardia [Unknown]
  - Fall [Recovered/Resolved]
  - Obesity [Unknown]
  - Drug hypersensitivity [Unknown]
  - Pneumonia [Unknown]
  - Pyrexia [Recovered/Resolved]
  - Haematoma [Unknown]
  - Tissue infiltration [Unknown]
  - Uterine enlargement [Unknown]
  - Sleep apnoea syndrome [Unknown]
  - Inguinal hernia [Unknown]
  - Hyperventilation [Unknown]
  - Drug intolerance [Unknown]
  - Dyspnoea [Unknown]
  - Spinal pain [Unknown]
  - Dysphagia [Unknown]
  - Pyrexia [Recovered/Resolved]
  - Neutropenia [Recovering/Resolving]
  - Dizziness [Unknown]
  - Hepatic steatosis [Unknown]

NARRATIVE: CASE EVENT DATE: 2014
